FAERS Safety Report 21112235 (Version 2)
Quarter: 2022Q3

REPORT INFORMATION
  Report Type: Spontaneous
  Country: AU (occurrence: AU)
  Receive Date: 20220721
  Receipt Date: 20220727
  Transmission Date: 20221027
  Serious: Yes (Other)
  Sender: FDA-Public Use
  Company Number: AU-PFIZER INC-2021406783

PATIENT
  Age: 76 Year
  Sex: Female

DRUGS (2)
  1. PREMARIN [Suspect]
     Active Substance: ESTROGENS, CONJUGATED
     Dosage: 0.625 MG
  2. XELJANZ [Suspect]
     Active Substance: TOFACITINIB CITRATE
     Dosage: UNK

REACTIONS (7)
  - Haemorrhage [Unknown]
  - Bone erosion [Unknown]
  - Mood swings [Unknown]
  - Depressed mood [Unknown]
  - Contusion [Unknown]
  - Arthralgia [Unknown]
  - Fall [Unknown]
